FAERS Safety Report 10313283 (Version 4)
Quarter: 2014Q3

REPORT INFORMATION
  Report Type: Spontaneous
  Country: NO (occurrence: None)
  Receive Date: 20140716
  Receipt Date: 20140813
  Transmission Date: 20150326
  Serious: Yes (Hospitalization, Other)
  Sender: FDA-Public Use
  Company Number: AUR-APL-2014-07403

PATIENT
  Age: 89 Year
  Sex: Male

DRUGS (6)
  1. DUODART [Concomitant]
     Active Substance: DUTASTERIDE\TAMSULOSIN
  2. LIPITOR [Concomitant]
     Active Substance: ATORVASTATIN CALCIUM
  3. ASPIRIN. [Concomitant]
     Active Substance: ASPIRIN
  4. CARBOPLATIN (CARBOPLATIN) [Concomitant]
     Active Substance: CARBOPLATIN
  5. RAMIPRIL (RAMIPRIL) UNKNOWN, UNKNOWN [Suspect]
     Active Substance: RAMIPRIL
     Indication: MYOCARDIAL INFARCTION
     Route: 048
  6. PARACET [Concomitant]
     Active Substance: ACETAMINOPHEN

REACTIONS (4)
  - Dizziness [None]
  - Dehydration [None]
  - Malaise [None]
  - Fluid intake reduced [None]

NARRATIVE: CASE EVENT DATE: 20140617
